FAERS Safety Report 22528942 (Version 1)
Quarter: 2023Q2

REPORT INFORMATION
  Report Type: Spontaneous
  Country: US (occurrence: US)
  Receive Date: 20230607
  Receipt Date: 20230607
  Transmission Date: 20230721
  Serious: Yes (Death)
  Sender: FDA-Public Use
  Company Number: US-AUROBINDO-AUR-APL-2023-040278

PATIENT
  Age: 59 Year
  Sex: Male

DRUGS (3)
  1. CITALOPRAM [Suspect]
     Active Substance: CITALOPRAM HYDROBROMIDE
     Indication: Product used for unknown indication
     Dosage: UNK
     Route: 065
  2. METHYLENE BLUE [Concomitant]
     Active Substance: METHYLENE BLUE
     Indication: Evidence based treatment
     Dosage: 0.5 MILLIGRAM/KILOGRAM
     Route: 065
  3. CALCIUM CHLORIDE [Concomitant]
     Active Substance: CALCIUM CHLORIDE
     Indication: Product used for unknown indication
     Dosage: 3 GRAM
     Route: 042

REACTIONS (1)
  - Toxicity to various agents [Fatal]
